FAERS Safety Report 9798742 (Version 2)
Quarter: 2015Q3

REPORT INFORMATION
  Report Type: Spontaneous
  Country: US (occurrence: US)
  Receive Date: 20140106
  Receipt Date: 20150806
  Transmission Date: 20151125
  Serious: No
  Sender: FDA-Public Use
  Company Number: US-GILEAD-2010-0029989

PATIENT
  Age: 52 Year
  Sex: Female

DRUGS (15)
  1. WELCHOL [Concomitant]
     Active Substance: COLESEVELAM HYDROCHLORIDE
  2. BLACK COHOSH [Concomitant]
     Active Substance: BLACK COHOSH
  3. XANAX [Concomitant]
     Active Substance: ALPRAZOLAM
  4. MVI [Concomitant]
     Active Substance: VITAMINS
  5. ASPIRIN. [Concomitant]
     Active Substance: ASPIRIN
  6. DARVOCET [Concomitant]
     Active Substance: ACETAMINOPHEN\PROPOXYPHENE HYDROCHLORIDE
  7. ZOLOFT [Concomitant]
     Active Substance: SERTRALINE HYDROCHLORIDE
  8. OMEGA 3 [Concomitant]
     Active Substance: OMEGA-3 FATTY ACIDS
  9. SYMBICORT [Concomitant]
     Active Substance: BUDESONIDE\FORMOTEROL FUMARATE DIHYDRATE
  10. LETAIRIS [Suspect]
     Active Substance: AMBRISENTAN
     Indication: PULMONARY ARTERIAL HYPERTENSION
     Route: 048
     Dates: start: 20080325
  11. VASOTEC [Concomitant]
     Active Substance: ENALAPRIL MALEATE
  12. TRICOR [Concomitant]
     Active Substance: FENOFIBRATE
  13. METAMUCIL [Concomitant]
     Active Substance: PLANTAGO SEED
  14. TOPROL XL [Concomitant]
     Active Substance: METOPROLOL SUCCINATE
  15. LIPITOR [Concomitant]
     Active Substance: ATORVASTATIN CALCIUM

REACTIONS (1)
  - Anaemia [Not Recovered/Not Resolved]

NARRATIVE: CASE EVENT DATE: 20100524
